FAERS Safety Report 5242198-1 (Version None)
Quarter: 2007Q1

REPORT INFORMATION
  Report Type: 
  Country: None (occurrence: None)
  Receive Date: 20070213
  Receipt Date: 20070206
  Transmission Date: 20070707
  Serious: Yes (Hospitalization)
  Sender: FDA-Public Use
  Company Number: THQ2006A00381

PATIENT
  Age: 77 Year
  Sex: Female

DRUGS (11)
  1. ACTOS [Suspect]
     Indication: INSULIN-REQUIRING TYPE II DIABETES MELLITUS
     Dosage: 15 MG (15 MG, 1 IN 1 D) PER ORAL
     Route: 048
     Dates: end: 20041001
  2. ACTOS [Suspect]
     Indication: INSULIN-REQUIRING TYPE II DIABETES MELLITUS
     Dosage: 15 MG (15 MG, 1 IN 1 D) PER ORAL
     Route: 048
     Dates: start: 20040701
  3. ZOCOR [Suspect]
     Indication: DRUG USE FOR UNKNOWN INDICATION
     Dosage: 40 MG
     Dates: end: 20041001
  4. ZOCOR [Suspect]
     Indication: DRUG USE FOR UNKNOWN INDICATION
     Dosage: 40 MG
     Dates: start: 20050701
  5. NOVO MIX 30 (INSULIN ASPART) [Concomitant]
  6. MOBIC [Concomitant]
  7. ADALAT [Concomitant]
  8. HYDROCHLOROTHIAZIDE [Concomitant]
  9. GLYBURIDE [Concomitant]
  10. LEVOTHYROXINE SODIUM [Concomitant]
  11. RAMIPRIL [Concomitant]

REACTIONS (6)
  - BACK PAIN [None]
  - BILE DUCT STONE [None]
  - CARBOHYDRATE ANTIGEN 19-9 INCREASED [None]
  - CHOLELITHIASIS [None]
  - FATIGUE [None]
  - LIVER FUNCTION TEST ABNORMAL [None]
